FAERS Safety Report 18128242 (Version 1)
Quarter: 2020Q3

REPORT INFORMATION
  Report Type: Spontaneous
  Country: US (occurrence: US)
  Receive Date: 20200810
  Receipt Date: 20200810
  Transmission Date: 20201103
  Serious: Yes (Other)
  Sender: FDA-Public Use
  Company Number: US-TORRENT-00010320

PATIENT
  Sex: Female

DRUGS (1)
  1. RISPERIDONE. [Suspect]
     Active Substance: RISPERIDONE
     Indication: BIPOLAR I DISORDER
     Dosage: UNKNOWN

REACTIONS (3)
  - Fibrocystic breast disease [Recovered/Resolved]
  - Hyperprolactinaemia [Recovered/Resolved]
  - Galactorrhoea [Recovered/Resolved]
